FAERS Safety Report 15006350 (Version 1)
Quarter: 2018Q2

REPORT INFORMATION
  Report Type: Spontaneous
  Country: US (occurrence: US)
  Receive Date: 20180613
  Receipt Date: 20180613
  Transmission Date: 20180711
  Serious: No
  Sender: FDA-Public Use
  Company Number: US-GALDERMA-US18001362

PATIENT
  Age: 29 Year
  Sex: Female

DRUGS (8)
  1. PROACTIV MD ADAPALENE ACNE TREATMENT [Suspect]
     Active Substance: ADAPALENE
     Indication: ACNE
     Dosage: 0.1%
     Route: 061
     Dates: start: 20170920, end: 20170928
  2. PROACTIV EYE BRIGHTENING SERUM [Concomitant]
     Active Substance: COSMETICS
     Route: 061
     Dates: start: 20170920, end: 20170928
  3. MULTIVITAMINS [Concomitant]
     Active Substance: VITAMINS
     Route: 048
  4. PROACTIV MD DEEP CLEANSING FACE WASH [Concomitant]
     Active Substance: COSMETICS
     Route: 061
     Dates: start: 20170920, end: 20170928
  5. PROACTIV SOLUTION DAILY PROTECTION PLUS SUNSCREEN SPF 30 [Suspect]
     Active Substance: AVOBENZONE\HOMOSALATE\OCTINOXATE\OCTISALATE\OXYBENZONE
     Indication: ACNE
     Route: 061
     Dates: start: 20170920, end: 20170928
  6. PROACTIV MOISTURE REPAIR [Concomitant]
     Active Substance: COSMETICS
     Route: 061
     Dates: start: 20170920, end: 20170928
  7. PROACTIV SKIN PURIFYING MASK [Concomitant]
     Active Substance: SULFUR
     Route: 061
     Dates: start: 20170920, end: 20170928
  8. PROACTIV MD BALANCING TONER [Concomitant]
     Active Substance: COSMETICS
     Route: 061
     Dates: start: 20170920, end: 20170928

REACTIONS (3)
  - Pain of skin [Recovered/Resolved]
  - Erythema [Recovered/Resolved]
  - Skin burning sensation [Recovered/Resolved]

NARRATIVE: CASE EVENT DATE: 20170925
